FAERS Safety Report 24570516 (Version 1)
Quarter: 2024Q4

REPORT INFORMATION
  Report Type: Spontaneous
  Country: AR (occurrence: AR)
  Receive Date: 20241031
  Receipt Date: 20241031
  Transmission Date: 20250115
  Serious: Yes (Other)
  Sender: FENNEC PHARMACEUTICALS
  Company Number: AR-FENNEC PHARMACEUTICALS, INC.-2024FEN00048

PATIENT
  Age: 42 Year
  Sex: Female

DRUGS (4)
  1. SODIUM THIOSULFATE [Suspect]
     Active Substance: SODIUM THIOSULFATE
     Indication: Calciphylaxis
     Dosage: UNK
     Route: 042
  2. SODIUM THIOSULFATE [Suspect]
     Active Substance: SODIUM THIOSULFATE
     Dosage: 2 ML OF SOLUTION (100 MG/ML) TO EACH LESION; INTRALESIONAL, SUBCUTANEOUS
     Route: 026
  3. SODIUM THIOSULFATE [Suspect]
     Active Substance: SODIUM THIOSULFATE
     Dosage: 25 G, 3X/WEEK, INTRAVENOUSLY AND INTRADIALYTIC ADMINISTRATION
     Route: 042
  4. LIDOCAINE;SULFADIAZINE [Concomitant]
     Indication: Analgesic therapy

REACTIONS (2)
  - Hypocalcaemia [Unknown]
  - Off label use [Unknown]
